FAERS Safety Report 14013764 (Version 6)
Quarter: 2018Q1

REPORT INFORMATION
  Report Type: Spontaneous
  Country: US (occurrence: US)
  Receive Date: 20170926
  Receipt Date: 20180307
  Transmission Date: 20180508
  Serious: Yes (Hospitalization)
  Sender: FDA-Public Use
  Company Number: US-ACTELION-A-NJ2017-159990

PATIENT
  Age: 30 Year
  Sex: Female
  Weight: 54.42 kg

DRUGS (5)
  1. REMODULIN [Concomitant]
     Active Substance: TREPROSTINIL
     Route: 058
  2. ADEMPAS [Concomitant]
     Active Substance: RIOCIGUAT
  3. REMODULIN [Concomitant]
     Active Substance: TREPROSTINIL
     Dosage: UNK
     Route: 042
  4. COUMADIN [Concomitant]
     Active Substance: WARFARIN SODIUM
  5. OPSUMIT [Suspect]
     Active Substance: MACITENTAN
     Indication: PULMONARY ARTERIAL HYPERTENSION
     Dosage: 10 MG, QD
     Route: 048

REACTIONS (8)
  - Arrhythmia [Unknown]
  - Syncope [Unknown]
  - Hypoxia [Unknown]
  - Pulmonary hypertension [Unknown]
  - Lung transplant [Unknown]
  - Presyncope [Unknown]
  - Infusion site pain [Unknown]
  - Acute respiratory failure [Unknown]

NARRATIVE: CASE EVENT DATE: 20180122
